FAERS Safety Report 9173543 (Version 1)
Quarter: 2013Q1

REPORT INFORMATION
  Report Type: Spontaneous
  Country: US (occurrence: None)
  Receive Date: 20130318
  Receipt Date: 20130318
  Transmission Date: 20140127
  Serious: Yes (Hospitalization)
  Sender: FDA-Public Use
  Company Number: 2013US0106

PATIENT
  Age: 86 Year
  Sex: Male

DRUGS (1)
  1. KINERET [Suspect]
     Indication: ACUTE MYOCARDIAL INFARCTION
     Dosage: 1 IN 1 D
     Route: 058

REACTIONS (2)
  - Urosepsis [None]
  - Haemorrhage [None]
